FAERS Safety Report 23876048 (Version 1)
Quarter: 2024Q2

REPORT INFORMATION
  Report Type: Other
  Country: US (occurrence: None)
  Receive Date: 20240520
  Receipt Date: 20240520
  Transmission Date: 20240715
  Serious: No
  Sender: FDA-Public Use
  Company Number: US-ROCHE-3565320

PATIENT
  Age: 66 Year
  Sex: Female

DRUGS (9)
  1. OCREVUS [Suspect]
     Active Substance: OCRELIZUMAB
     Indication: Multiple sclerosis
     Dosage: 600 MG EVERY 6 MONTH?30 MG/ML?THERAPY END DATE: 23/AUG/2024?DOT: 2024-03-29, 2023-03-23, 2022-08-25,
     Route: 042
     Dates: start: 20230823
  2. LOSARTAN [Concomitant]
     Active Substance: LOSARTAN
  3. HYDROXYCHLOROQUINE [Concomitant]
     Active Substance: HYDROXYCHLOROQUINE
  4. CEVIMELINE [Concomitant]
     Active Substance: CEVIMELINE
  5. METFORMIN [Concomitant]
     Active Substance: METFORMIN HYDROCHLORIDE
  6. TAMSULOSIN [Concomitant]
     Active Substance: TAMSULOSIN
  7. DIPHENHYDRAMINE [Concomitant]
     Active Substance: DIPHENHYDRAMINE
     Route: 042
  8. TYLENOL [Concomitant]
     Active Substance: ACETAMINOPHEN
     Route: 048
  9. SOLU-MEDROL [Concomitant]
     Active Substance: METHYLPREDNISOLONE SODIUM SUCCINATE
     Route: 042

REACTIONS (3)
  - Illness [Unknown]
  - Pneumonia [Unknown]
  - Influenza [Unknown]
